FAERS Safety Report 6686440-9 (Version None)
Quarter: 2010Q2

REPORT INFORMATION
  Report Type: 
  Country: None (occurrence: None)
  Receive Date: 20100419
  Receipt Date: 20100409
  Transmission Date: 20101027
  Serious: Yes (Other)
  Sender: FDA-Public Use
  Company Number: B0646379A

PATIENT
  Sex: Female

DRUGS (14)
  1. ZOPHREN [Suspect]
     Dosage: 8MG CYCLIC
     Route: 042
     Dates: start: 20081015, end: 20090113
  2. IZILOX [Suspect]
     Dosage: 400MG PER DAY
     Route: 048
     Dates: start: 20081211, end: 20090101
  3. ACUPAN [Suspect]
     Indication: DRUG USE FOR UNKNOWN INDICATION
     Dosage: 120MG PER DAY
     Route: 042
     Dates: start: 20081202, end: 20081211
  4. CYTARABINE [Suspect]
     Route: 042
     Dates: start: 20081015, end: 20090113
  5. POSACONAZOLE [Suspect]
     Indication: DRUG USE FOR UNKNOWN INDICATION
     Dosage: 600MG PER DAY
     Route: 048
     Dates: start: 20081201, end: 20081208
  6. ZELITREX [Concomitant]
     Route: 065
  7. AMIKIN [Concomitant]
     Route: 065
  8. VANCOMYCIN HCL [Concomitant]
     Route: 065
  9. BACTRIM [Concomitant]
     Route: 065
  10. LUTENYL [Concomitant]
     Route: 065
  11. OMEPRAZOLE [Concomitant]
     Route: 065
  12. GRANOCYTE [Concomitant]
     Route: 065
  13. TAZOCILLINE [Concomitant]
     Route: 065
  14. OXYCODONE HCL [Concomitant]
     Route: 065

REACTIONS (3)
  - BRADYCARDIA [None]
  - PALPITATIONS [None]
  - VENTRICULAR EXTRASYSTOLES [None]
